FAERS Safety Report 9112575 (Version 1)
Quarter: 2013Q1

REPORT INFORMATION
  Report Type: Spontaneous
  Country: AU (occurrence: AU)
  Receive Date: 20130211
  Receipt Date: 20130211
  Transmission Date: 20140127
  Serious: Yes (Hospitalization, Other)
  Sender: FDA-Public Use
  Company Number: PHHY2013AU003620

PATIENT
  Age: 62 Year
  Sex: Female

DRUGS (7)
  1. HYDRALAZINE [Suspect]
     Dosage: 100 MG, (IN THE MORNING) AND 50MG (IN THE NIGHT)
  2. WARFARIN [Concomitant]
     Dosage: 50 MG, QD ( IN THE NIGHT)
  3. PERINDOPRIL [Concomitant]
     Dosage: 10 MG, DAILY
  4. METOPROLOL [Concomitant]
     Dosage: 50 MG, BID
  5. CLONIDINE [Concomitant]
     Dosage: 50 MG, BID
  6. THYROXINE [Concomitant]
     Dosage: 50 MCG AND 25 MCG ON ALTERNATE DAYS
  7. ROSUVASTATIN [Concomitant]
     Dosage: 5 MG, QD (AT NIGHT)

REACTIONS (15)
  - Anti-neutrophil cytoplasmic antibody positive vasculitis [Recovering/Resolving]
  - Rash [Recovered/Resolved]
  - Glomerulonephritis rapidly progressive [Recovering/Resolving]
  - Lymphocytic infiltration [Recovering/Resolving]
  - Haematuria [Recovering/Resolving]
  - Mouth ulceration [Recovering/Resolving]
  - Oropharyngeal pain [Recovering/Resolving]
  - Ear pain [Recovering/Resolving]
  - Cardiac murmur [Recovering/Resolving]
  - Renal failure acute [Recovering/Resolving]
  - Proteinuria [Recovering/Resolving]
  - Weight decreased [Recovering/Resolving]
  - Night sweats [Recovering/Resolving]
  - Lethargy [Recovering/Resolving]
  - Streptococcal bacteraemia [Recovering/Resolving]
